FAERS Safety Report 23576701 (Version 1)
Quarter: 2024Q1

REPORT INFORMATION
  Report Type: Spontaneous
  Country: AU (occurrence: AU)
  Receive Date: 20240228
  Receipt Date: 20240228
  Transmission Date: 20240409
  Serious: Yes (Other)
  Sender: FDA-Public Use
  Company Number: AU-PFIZER INC-PV202400026341

PATIENT
  Sex: Female

DRUGS (10)
  1. TOFACITINIB CITRATE [Interacting]
     Active Substance: TOFACITINIB CITRATE
  2. AMLODIPINE [Interacting]
     Active Substance: AMLODIPINE BESYLATE
  3. ACETAMINOPHEN [Interacting]
     Active Substance: ACETAMINOPHEN
  4. ESOMEPRAZOLE [Interacting]
     Active Substance: ESOMEPRAZOLE
  5. TRAMADOL [Interacting]
     Active Substance: TRAMADOL\TRAMADOL HYDROCHLORIDE
  6. FLUOXETINE [Interacting]
     Active Substance: FLUOXETINE HYDROCHLORIDE
  7. MOCLOBEMIDE [Interacting]
     Active Substance: MOCLOBEMIDE
  8. VALSARTAN [Interacting]
     Active Substance: VALSARTAN
  9. VENLAFAXINE [Interacting]
     Active Substance: VENLAFAXINE HYDROCHLORIDE
  10. ESCITALOPRAM [Interacting]
     Active Substance: ESCITALOPRAM OXALATE

REACTIONS (8)
  - Suicide attempt [Unknown]
  - Acute kidney injury [Unknown]
  - Major depression [Unknown]
  - Serotonin syndrome [Unknown]
  - Drug interaction [Unknown]
  - Metabolic acidosis [Unknown]
  - Physical deconditioning [Unknown]
  - Intentional overdose [Unknown]
